FAERS Safety Report 13137778 (Version 1)
Quarter: 2017Q1

REPORT INFORMATION
  Report Type: Spontaneous
  Country: RU (occurrence: RU)
  Receive Date: 20170123
  Receipt Date: 20170123
  Transmission Date: 20170428
  Serious: Yes (Hospitalization)
  Sender: FDA-Public Use
  Company Number: RU-ASTRAZENECA-2017SE05034

PATIENT
  Age: 63 Year
  Sex: Female
  Weight: 120 kg

DRUGS (7)
  1. DIABETON [Concomitant]
     Active Substance: GLICLAZIDE
  2. ATORVASTATIN [Concomitant]
     Active Substance: ATORVASTATIN
  3. BRILINTA [Suspect]
     Active Substance: TICAGRELOR
     Indication: MYOCARDIAL INFARCTION
     Route: 048
     Dates: start: 201611
  4. SYDNOPHARM [Concomitant]
  5. DIUVER [Concomitant]
     Active Substance: TORSEMIDE
  6. CONCOR [Concomitant]
     Active Substance: BISOPROLOL FUMARATE
  7. CARDIOMAGNYL [Concomitant]
     Active Substance: ASPIRIN\MAGNESIUM HYDROXIDE

REACTIONS (2)
  - Influenza [Recovered/Resolved]
  - Dyspnoea [Not Recovered/Not Resolved]

NARRATIVE: CASE EVENT DATE: 201611
